FAERS Safety Report 16646817 (Version 1)
Quarter: 2019Q3

REPORT INFORMATION
  Report Type: Spontaneous
  Country: SE (occurrence: SE)
  Receive Date: 20190730
  Receipt Date: 20190730
  Transmission Date: 20191004
  Serious: Yes (Other)
  Sender: FDA-Public Use
  Company Number: SE-PFIZER INC-2019319346

PATIENT
  Sex: Male

DRUGS (3)
  1. XANOR DEPOT [Suspect]
     Active Substance: ALPRAZOLAM
     Indication: ANXIETY
     Dosage: 0.5 MG, AS NEEDED
     Dates: start: 201901
  2. AMITRIPTYLINE ABCUR [Interacting]
     Active Substance: AMITRIPTYLINE HYDROCHLORIDE
     Indication: DEPRESSION
     Dosage: 125 MG, UNK (50/50/25 MG)
  3. XANOR DEPOT [Interacting]
     Active Substance: ALPRAZOLAM
     Dosage: 2 MG, DAILY
     Dates: start: 20190709

REACTIONS (9)
  - Confusional state [Recovered/Resolved]
  - Drug interaction [Unknown]
  - Accidental overdose [Unknown]
  - Contusion [Unknown]
  - Amnesia [Recovered/Resolved]
  - Mood swings [Not Recovered/Not Resolved]
  - Loss of consciousness [Unknown]
  - Fall [Recovered/Resolved]
  - Wound [Unknown]

NARRATIVE: CASE EVENT DATE: 201907
